FAERS Safety Report 9849715 (Version 1)
Quarter: 2014Q1

REPORT INFORMATION
  Report Type: Spontaneous
  Country: US (occurrence: US)
  Receive Date: 20140128
  Receipt Date: 20140128
  Transmission Date: 20141002
  Serious: No
  Sender: FDA-Public Use
  Company Number: US-PFIZER INC-2014025853

PATIENT
  Age: 31 Year
  Sex: Female
  Weight: 83.9 kg

DRUGS (3)
  1. EFFEXOR XR [Suspect]
     Indication: DEPRESSION
     Dosage: 150 MG, 2X/DAY
     Dates: start: 2013
  2. EFFEXOR XR [Suspect]
     Indication: ANXIETY
  3. METFORMIN [Concomitant]
     Indication: POLYCYSTIC OVARIES
     Dosage: UNK

REACTIONS (1)
  - Drug ineffective [Unknown]
